FAERS Safety Report 13397396 (Version 1)
Quarter: 2017Q2

REPORT INFORMATION
  Report Type: Spontaneous
  Country: SI (occurrence: SI)
  Receive Date: 20170403
  Receipt Date: 20170403
  Transmission Date: 20170830
  Serious: Yes (Other)
  Sender: FDA-Public Use
  Company Number: SI-009507513-1704SVN000098

PATIENT
  Age: 12 Month
  Sex: Male

DRUGS (4)
  1. VENTOLIN [Concomitant]
     Active Substance: ALBUTEROL SULFATE
     Dosage: INHALER, 2 PUFFS EVERY 6 HOURS THE NEXT TWO DAYS
     Route: 055
  2. VENTOLIN [Concomitant]
     Active Substance: ALBUTEROL SULFATE
     Dosage: INHALER, 2 PUFFS EVERY 8 HOURS THE FOLLOWING 2 DAYS
     Route: 055
  3. SINGULAIR [Suspect]
     Active Substance: MONTELUKAST SODIUM
     Indication: BRONCHIOLITIS
     Dosage: UNK
     Dates: start: 20130925, end: 20131002
  4. VENTOLIN [Concomitant]
     Active Substance: ALBUTEROL SULFATE
     Dosage: INHALER, 2 PUFFS EVERY 4 HOURS THE FIRST DAY
     Route: 055

REACTIONS (2)
  - Sleep terror [Recovered/Resolved]
  - Middle insomnia [Recovered/Resolved]

NARRATIVE: CASE EVENT DATE: 20130925
